FAERS Safety Report 24987062 (Version 1)
Quarter: 2025Q1

REPORT INFORMATION
  Report Type: Spontaneous
  Country: US (occurrence: US)
  Receive Date: 20250219
  Receipt Date: 20250219
  Transmission Date: 20250409
  Serious: No
  Sender: INSUD PHARMA
  Company Number: US-INSUD PHARMA-2502US00838

PATIENT

DRUGS (1)
  1. OMEPRAZOLE [Suspect]
     Active Substance: OMEPRAZOLE
     Indication: Gastrooesophageal reflux disease
     Dosage: 20 MILLIGRAM TWICE A DAY
     Route: 048

REACTIONS (5)
  - Foreign body in gastrointestinal tract [Recovered/Resolved]
  - Vomiting [Recovered/Resolved]
  - Nausea [Recovered/Resolved]
  - Product physical issue [Unknown]
  - Product use issue [Unknown]

NARRATIVE: CASE EVENT DATE: 20240203
